FAERS Safety Report 7030222-5 (Version None)
Quarter: 2010Q4

REPORT INFORMATION
  Report Type: 
  Country: None (occurrence: None)
  Receive Date: 20101006
  Receipt Date: 20100922
  Transmission Date: 20110411
  Serious: Yes (Other)
  Sender: FDA-Public Use
  Company Number: TR-RANBAXY-2007RR-07452

PATIENT
  Age: 63 Year
  Sex: Female

DRUGS (2)
  1. FENOFIBRATE [Suspect]
     Dosage: 200 MG, QD
  2. SIMVASTATIN [Suspect]
     Dosage: 20 MG, QD

REACTIONS (2)
  - RENAL FAILURE ACUTE [None]
  - RHABDOMYOLYSIS [None]
